FAERS Safety Report 6068991-3 (Version None)
Quarter: 2009Q1

REPORT INFORMATION
  Report Type: 
  Country: None (occurrence: None)
  Receive Date: 20090206
  Receipt Date: 20090116
  Transmission Date: 20090719
  Serious: No
  Sender: FDA-Public Use
  Company Number: US-BAYER-200813678BCC

PATIENT
  Age: 57 Year
  Sex: Female
  Weight: 77 kg

DRUGS (3)
  1. FINACEA [Suspect]
     Indication: ROSACEA
     Route: 061
     Dates: start: 20080801, end: 20080904
  2. HIGH BLOOD PRESSURE MEDICATIONS [Concomitant]
  3. CHOLESTEROL PILL [Concomitant]

REACTIONS (4)
  - HYPERSENSITIVITY [None]
  - ROSACEA [None]
  - SKIN BURNING SENSATION [None]
  - SKIN TIGHTNESS [None]
